FAERS Safety Report 6430354-6 (Version None)
Quarter: 2009Q4

REPORT INFORMATION
  Report Type: 
  Country: None (occurrence: None)
  Receive Date: 20091106
  Receipt Date: 20091030
  Transmission Date: 20100525
  Serious: Yes (Hospitalization)
  Sender: FDA-Public Use
  Company Number: US-EISAI INC.-E2090-00817-SOL-US

PATIENT
  Sex: Female
  Weight: 80.8 kg

DRUGS (4)
  1. ZONEGRAN [Suspect]
     Indication: DRUG USE FOR UNKNOWN INDICATION
     Dosage: UNKNOWN
     Route: 048
  2. LEUKINE [Suspect]
     Indication: GLIOBLASTOMA MULTIFORME
     Dosage: 150 MCG EVERY 2 WEEKS X3
     Route: 023
     Dates: start: 20090421
  3. CDX-110 [Suspect]
     Dosage: 500 MCG EVERY 2 WEEKS X 3
     Route: 023
     Dates: start: 20090421
  4. NITROFURANTOIN [Concomitant]
     Indication: INFECTION
     Dates: start: 20090424, end: 20090428

REACTIONS (1)
  - URTICARIA [None]
